FAERS Safety Report 12904913 (Version 2)
Quarter: 2017Q1

REPORT INFORMATION
  Report Type: Spontaneous
  Country: BR (occurrence: BR)
  Receive Date: 20161102
  Receipt Date: 20170131
  Transmission Date: 20170428
  Serious: Yes (Hospitalization, Other)
  Sender: FDA-Public Use
  Company Number: BR-ASTRAZENECA-2016SF12134

PATIENT
  Age: 55 Year
  Sex: Female
  Weight: 82 kg

DRUGS (6)
  1. METFORMIN [Concomitant]
     Active Substance: METFORMIN HYDROCHLORIDE
     Indication: DIABETES MELLITUS
     Route: 048
  2. DIAMICRON [Concomitant]
     Active Substance: GLICLAZIDE
     Indication: DIABETES MELLITUS
     Route: 048
  3. JARDIANCE [Concomitant]
     Active Substance: EMPAGLIFLOZIN
     Indication: DIABETES MELLITUS
     Route: 048
     Dates: end: 201609
  4. ROSUVASTATIN. [Suspect]
     Active Substance: ROSUVASTATIN
     Indication: BLOOD CHOLESTEROL ABNORMAL
     Route: 048
     Dates: end: 20161022
  5. BRILINTA [Suspect]
     Active Substance: TICAGRELOR
     Indication: INFARCTION
     Route: 048
     Dates: start: 201604, end: 201609
  6. ENALAPRIL [Concomitant]
     Active Substance: ENALAPRIL
     Indication: INFARCTION
     Route: 048
     Dates: start: 201604

REACTIONS (9)
  - Blood cholesterol increased [Unknown]
  - Depression [Not Recovered/Not Resolved]
  - Intentional product misuse [Recovered/Resolved]
  - Infarction [Recovered/Resolved]
  - Diabetes mellitus inadequate control [Recovered/Resolved]
  - Skin discolouration [Unknown]
  - Wound infection [Recovered/Resolved]
  - Drug ineffective [Unknown]
  - Headache [Recovered/Resolved]

NARRATIVE: CASE EVENT DATE: 2016
